FAERS Safety Report 24616060 (Version 1)
Quarter: 2024Q4

REPORT INFORMATION
  Report Type: Spontaneous
  Country: GB (occurrence: GB)
  Receive Date: 20241113
  Receipt Date: 20241113
  Transmission Date: 20250114
  Serious: Yes (Life-Threatening, Other)
  Sender: FRESENIUS KABI
  Company Number: None

PATIENT
  Age: 55 Year
  Sex: Male
  Weight: 74 kg

DRUGS (3)
  1. ADALIMUMAB [Suspect]
     Active Substance: ADALIMUMAB
     Indication: Inflammatory bowel disease
     Dosage: 40MG FORTNIGHTLY?FORM OF ADMIN: SUSPENSION FOR INJECTION
  2. AZATHIOPRINE [Concomitant]
     Active Substance: AZATHIOPRINE
     Indication: Adverse drug reaction
  3. ESCITALOPRAM [Concomitant]
     Active Substance: ESCITALOPRAM OXALATE
     Indication: Product used for unknown indication

REACTIONS (1)
  - Haemophagocytic lymphohistiocytosis [Recovered/Resolved with Sequelae]

NARRATIVE: CASE EVENT DATE: 20241017
